FAERS Safety Report 17793685 (Version 2)
Quarter: 2020Q2

REPORT INFORMATION
  Report Type: Spontaneous
  Country: DE (occurrence: DE)
  Receive Date: 20200515
  Receipt Date: 20200604
  Transmission Date: 20200714
  Serious: Yes (Hospitalization)
  Sender: FDA-Public Use
  Company Number: DE-ALLERGAN-2018669US

PATIENT
  Sex: Male

DRUGS (13)
  1. OZURDEX [Suspect]
     Active Substance: DEXAMETHASONE
     Indication: DIABETIC RETINOPATHY
     Dosage: 0.7 MG, SINGLE
     Route: 031
     Dates: start: 20200306, end: 20200306
  2. OZURDEX [Suspect]
     Active Substance: DEXAMETHASONE
     Dosage: 0.7 MG, SINGLE
     Route: 031
     Dates: start: 20190920, end: 20190920
  3. ELIQUIS [Concomitant]
     Active Substance: APIXABAN
     Indication: HYPERCOAGULATION
     Dosage: 5 MG
  4. METFORMIN 1A PHARMA [Concomitant]
     Active Substance: METFORMIN HYDROCHLORIDE
     Indication: DIABETES MELLITUS
     Dosage: 1 TABLET IN THE MORNING AND 1 IN THE EVENING
  5. OZURDEX [Suspect]
     Active Substance: DEXAMETHASONE
     Dosage: 0.7 MG, SINGLE
     Route: 031
     Dates: start: 20190906, end: 20190906
  6. ENALAPRIL 1A PHARMA GMBH [Concomitant]
     Active Substance: ENALAPRIL MALEATE
     Indication: HYPERTENSION
     Dosage: ONE TABLET IN THE MORNING AND HALF A TABLET IN THE EVENING
  7. TORASEMIDE [Concomitant]
     Active Substance: TORSEMIDE
     Indication: FLUID RETENTION
     Dosage: HALF A TABLET IN THE MORNING
  8. MAGNESIUM VERLA N [Concomitant]
     Active Substance: MAGNESIUM
     Dosage: 40 MG- 2 TABLETS IN THE EVENING
  9. ELIQUIS [Concomitant]
     Active Substance: APIXABAN
     Dosage: ONE TABLET IN THE MORNING AND ONE
     Dates: end: 20181128
  10. ATOZET [Concomitant]
     Active Substance: ATORVASTATIN CALCIUM\EZETIMIBE
     Dosage: 1 DF, QHS
  11. PANTOPRAZOLE SODIUM. [Concomitant]
     Active Substance: PANTOPRAZOLE SODIUM
     Indication: PROPHYLAXIS
     Dosage: 20 MG, QAM
     Route: 048
  12. BISOPROLOL 1A PHARMA [Concomitant]
     Active Substance: BISOPROLOL
     Indication: HYPERTENSION
     Dosage: 1 TABLET IN THE MORNING AND 1 IN THE EVENING
  13. JANUVIA [Concomitant]
     Active Substance: SITAGLIPTIN PHOSPHATE
     Dosage: 1 DF, QAM

REACTIONS (7)
  - Retinal aneurysm [Not Recovered/Not Resolved]
  - Retinal haemorrhage [Not Recovered/Not Resolved]
  - Vitreous floaters [Not Recovered/Not Resolved]
  - Vitrectomy [Unknown]
  - Eye infection intraocular [Not Recovered/Not Resolved]
  - Ciliary body haemorrhage [Not Recovered/Not Resolved]
  - Cystoid macular oedema [Not Recovered/Not Resolved]

NARRATIVE: CASE EVENT DATE: 20200409
